FAERS Safety Report 12375342 (Version 1)
Quarter: 2016Q2

REPORT INFORMATION
  Report Type: Spontaneous
  Country: US (occurrence: None)
  Receive Date: 20160516
  Receipt Date: 20160516
  Transmission Date: 20160815
  Serious: No
  Sender: FDA-Public Use
  Company Number: None

PATIENT
  Age: 60 Year
  Sex: Male
  Weight: 147.42 kg

DRUGS (8)
  1. FISH OIL [Concomitant]
     Active Substance: FISH OIL
  2. INSULIN [Concomitant]
     Active Substance: INSULIN NOS
  3. WARFARIN 10MG TAB CIT, 10 MG WALMART [Suspect]
     Active Substance: WARFARIN
     Indication: PHLEBITIS
     Dosage: 90 TABLET(S) ONCE A DAY TAKEN BY MOUTH
     Route: 048
     Dates: start: 20160509
  4. LISINOPRIL. [Concomitant]
     Active Substance: LISINOPRIL
  5. ZYRTEC [Concomitant]
     Active Substance: CETIRIZINE HYDROCHLORIDE
  6. GLIMEPRIDE [Concomitant]
     Active Substance: GLIMEPIRIDE
  7. GNC GENERIC VITAMIN FOR MEN [Concomitant]
  8. METFORMIN [Concomitant]
     Active Substance: METFORMIN HYDROCHLORIDE

REACTIONS (5)
  - Pain in extremity [None]
  - Incorrect dose administered [None]
  - Product substitution issue [None]
  - Product packaging quantity issue [None]
  - Muscle spasms [None]

NARRATIVE: CASE EVENT DATE: 20160509
